FAERS Safety Report 15023678 (Version 2)
Quarter: 2018Q3

REPORT INFORMATION
  Report Type: Spontaneous
  Country: US (occurrence: US)
  Receive Date: 20180618
  Receipt Date: 20180726
  Transmission Date: 20181010
  Serious: Yes (Hospitalization, Other)
  Sender: FDA-Public Use
  Company Number: US-MYLANLABS-2018M1039840

PATIENT
  Age: 71 Year
  Sex: Female

DRUGS (16)
  1. AMBISOME [Suspect]
     Active Substance: AMPHOTERICIN B
     Dosage: 300 MG, QD
     Route: 042
     Dates: start: 20180611, end: 20180619
  2. AMBISOME [Suspect]
     Active Substance: AMPHOTERICIN B
     Indication: HISTOPLASMOSIS
     Dosage: 3 MG/KG, QD
     Route: 042
     Dates: start: 20180521, end: 20180523
  3. PREDNISONE. [Suspect]
     Active Substance: PREDNISONE
     Indication: RHEUMATOID ARTHRITIS
     Dosage: UNK
  4. CRESEMBA [Suspect]
     Active Substance: ISAVUCONAZONIUM SULFATE
     Dosage: 372 MG, QD
     Route: 048
     Dates: start: 20180516, end: 20180517
  5. AMBISOME [Suspect]
     Active Substance: AMPHOTERICIN B
     Dosage: 150 MG, QD
     Route: 042
     Dates: start: 20180523, end: 20180523
  6. HEPARIN [Concomitant]
     Active Substance: HEPARIN SODIUM
     Indication: PRODUCT USED FOR UNKNOWN INDICATION
     Dosage: UNK
     Route: 058
     Dates: start: 201805
  7. CRESEMBA [Suspect]
     Active Substance: ISAVUCONAZONIUM SULFATE
     Indication: BLASTOMYCOSIS
     Dosage: 372 MG, QD
     Route: 042
     Dates: start: 20180504, end: 20180504
  8. CRESEMBA [Suspect]
     Active Substance: ISAVUCONAZONIUM SULFATE
     Indication: HISTOPLASMOSIS
     Dosage: 372 MG, Q8H
     Route: 042
     Dates: start: 20180504, end: 20180504
  9. CRESEMBA [Suspect]
     Active Substance: ISAVUCONAZONIUM SULFATE
     Dosage: 372 MG, QD
     Route: 042
     Dates: start: 20180517, end: 20180521
  10. AMBISOME [Suspect]
     Active Substance: AMPHOTERICIN B
     Indication: BLASTOMYCOSIS
     Dosage: 5 MG/KG, QD
     Route: 042
     Dates: start: 20180504, end: 20180508
  11. AMBISOME [Suspect]
     Active Substance: AMPHOTERICIN B
     Dosage: 200 MG, QD
     Route: 042
     Dates: start: 20180524, end: 20180608
  12. CRESEMBA [Suspect]
     Active Substance: ISAVUCONAZONIUM SULFATE
     Dosage: 372 MG, Q8H
     Dates: start: 20180509, end: 20180510
  13. REMICADE [Suspect]
     Active Substance: INFLIXIMAB
     Indication: PYODERMA GANGRENOSUM
     Dosage: UNK
  14. CRESEMBA [Suspect]
     Active Substance: ISAVUCONAZONIUM SULFATE
     Dosage: 372 MG, QD
     Dates: start: 20180506
  15. CRESEMBA [Suspect]
     Active Substance: ISAVUCONAZONIUM SULFATE
     Dosage: 372 MG, QD
     Route: 042
     Dates: start: 20180511, end: 20180515
  16. AMBISOME [Suspect]
     Active Substance: AMPHOTERICIN B
     Dosage: 300 MG, QD
     Route: 042
     Dates: start: 20180608, end: 20180611

REACTIONS (4)
  - Pulmonary embolism [Unknown]
  - Acute myocardial infarction [Unknown]
  - Epistaxis [Unknown]
  - Treatment failure [Unknown]

NARRATIVE: CASE EVENT DATE: 20180509
